FAERS Safety Report 16496376 (Version 1)
Quarter: 2019Q2

REPORT INFORMATION
  Report Type: Spontaneous
  Country: US (occurrence: US)
  Receive Date: 20190628
  Receipt Date: 20190628
  Transmission Date: 20190711
  Serious: No
  Sender: FDA-Public Use
  Company Number: US-PRINSTON PHARMACEUTICAL INC.-2019PRN00242

PATIENT
  Sex: Female
  Weight: 62.13 kg

DRUGS (9)
  1. PASSION FLOWER [Concomitant]
     Active Substance: HERBALS\HOMEOPATHICS\PASSIFLORA INCARNATA FLOWER
     Dosage: UNK, 1X/DAY
  2. 5-HTP [Concomitant]
     Dosage: UNK, 1X/DAY
  3. LISINOPRIL. [Concomitant]
     Active Substance: LISINOPRIL
  4. VITAMIN B12 [Concomitant]
     Active Substance: CYANOCOBALAMIN
  5. BUPROPION HYDROCHLORIDE. [Suspect]
     Active Substance: BUPROPION HYDROCHLORIDE
     Indication: DEPRESSION
     Dosage: 100 MG, 1X/DAY
     Route: 048
     Dates: start: 20190129, end: 20190219
  6. MELATONIN [Concomitant]
     Active Substance: MELATONIN
     Dosage: UNK, 1X/DAY
  7. VITAMIN B6 [Concomitant]
     Active Substance: PYRIDOXINE HYDROCHLORIDE
  8. FISH OIL [Concomitant]
     Active Substance: FISH OIL
  9. GABA [Concomitant]
     Active Substance: HOMEOPATHICS
     Dosage: UNK, 1X/DAY

REACTIONS (10)
  - Micturition urgency [Recovered/Resolved]
  - Urine flow decreased [Recovered/Resolved]
  - Vision blurred [Not Recovered/Not Resolved]
  - Eye disorder [Not Recovered/Not Resolved]
  - Insomnia [Unknown]
  - Blood pressure increased [Recovered/Resolved]
  - Discomfort [Not Recovered/Not Resolved]
  - Pollakiuria [Recovered/Resolved]
  - Sinus disorder [Not Recovered/Not Resolved]
  - Memory impairment [Not Recovered/Not Resolved]

NARRATIVE: CASE EVENT DATE: 2019
